FAERS Safety Report 5477583-6 (Version None)
Quarter: 2007Q4

REPORT INFORMATION
  Report Type: 
  Country: None (occurrence: None)
  Receive Date: 20071001
  Receipt Date: 20070921
  Transmission Date: 20080405
  Serious: Yes (Death, Hospitalization)
  Sender: FDA-Public Use
  Company Number: 2006-01525

PATIENT
  Age: 69 Year
  Sex: Male
  Weight: 59 kg

DRUGS (8)
  1. VELCADE [Suspect]
     Dosage: 3.00 MG, INTRAVENOUS, 2.20 MG, INTRAVENOUS
     Route: 042
     Dates: end: 20060309
  2. VELCADE [Suspect]
     Dosage: 3.00 MG, INTRAVENOUS, 2.20 MG, INTRAVENOUS
     Route: 042
     Dates: start: 20051103
  3. EPOETIN BETA (EPOETIN BETA) [Concomitant]
  4. CARBAMAZEPINE [Concomitant]
  5. DEPAKENE [Concomitant]
  6. VALACYCLOVIR HCL [Concomitant]
  7. BACTRIM (SULFAMETHOXAZOLE, TRIMETHOPRIM) SYRUP [Concomitant]
  8. VORICONAZOLE (VORICONAZOLE) [Concomitant]

REACTIONS (33)
  - ACUTE PULMONARY OEDEMA [None]
  - AGITATION [None]
  - ALANINE AMINOTRANSFERASE INCREASED [None]
  - ANAEMIA [None]
  - ASPARTATE AMINOTRANSFERASE INCREASED [None]
  - BLOOD BILIRUBIN INCREASED [None]
  - BLOOD CREATININE INCREASED [None]
  - BLOOD PRESSURE DECREASED [None]
  - BLOOD PRESSURE DIASTOLIC DECREASED [None]
  - BLOOD UREA INCREASED [None]
  - BODY TEMPERATURE DECREASED [None]
  - CARDIOMEGALY [None]
  - CEREBRAL CALCIFICATION [None]
  - CONFUSIONAL STATE [None]
  - DEHYDRATION [None]
  - GENERAL PHYSICAL HEALTH DETERIORATION [None]
  - HEPATIC PAIN [None]
  - HEPATOMEGALY [None]
  - HYPERAESTHESIA [None]
  - HYPERKALAEMIA [None]
  - HYPONATRAEMIA [None]
  - LEFT VENTRICULAR FAILURE [None]
  - LEUKOPENIA [None]
  - LYMPHADENOPATHY [None]
  - LYMPHOCYTE PERCENTAGE INCREASED [None]
  - MONOCYTE PERCENTAGE DECREASED [None]
  - NEUTROPENIA [None]
  - NEUTROPHIL PERCENTAGE INCREASED [None]
  - NO THERAPEUTIC RESPONSE [None]
  - PULMONARY HYPERTENSION [None]
  - RESPIRATORY DISTRESS [None]
  - RESPIRATORY FAILURE [None]
  - THROMBOCYTOPENIA [None]
